FAERS Safety Report 7075520-4 (Version None)
Quarter: 2010Q4

REPORT INFORMATION
  Report Type: 
  Country: None (occurrence: None)
  Receive Date: 20101030
  Receipt Date: 20100921
  Transmission Date: 20110411
  Serious: No
  Sender: FDA-Public Use
  Company Number: US-WYE-H17669710

PATIENT
  Sex: Female
  Weight: 65.83 kg

DRUGS (8)
  1. PRISTIQ [Suspect]
     Indication: ANXIETY
     Route: 048
     Dates: start: 20100601
  2. PRISTIQ [Suspect]
     Indication: DEPRESSION
  3. PRISTIQ [Suspect]
     Indication: ANGER
  4. L-METHYLFOLATE [Concomitant]
  5. HYDROCODONE BITARTRATE + ACETAMINOPHEN [Concomitant]
  6. LORAZEPAM [Concomitant]
  7. BUPROPION HYDROCHLORIDE [Concomitant]
  8. LAMOTRIGINE [Concomitant]

REACTIONS (3)
  - ANGER [None]
  - CONDITION AGGRAVATED [None]
  - VIOLENCE-RELATED SYMPTOM [None]
